FAERS Safety Report 8595147-2 (Version None)
Quarter: 2012Q3

REPORT INFORMATION
  Report Type: 
  Country: None (occurrence: None)
  Receive Date: 20120807
  Receipt Date: 20120807
  Transmission Date: 20120928
  Serious: Yes (Hospitalization)
  Sender: FDA-Public Use
  Company Number: None

PATIENT
  Sex: Female
  Weight: 87.7 kg

DRUGS (1)
  1. ACTEMRA [Suspect]
     Dosage: Q28 DAYS I.V.
     Route: 042

REACTIONS (3)
  - PULMONARY CONGESTION [None]
  - OEDEMA PERIPHERAL [None]
  - FLUID OVERLOAD [None]
